FAERS Safety Report 17579903 (Version 1)
Quarter: 2020Q1

REPORT INFORMATION
  Report Type: Spontaneous
  Country: US (occurrence: US)
  Receive Date: 20200320
  Receipt Date: 20200320
  Transmission Date: 20200409
  Serious: Yes (Hospitalization)
  Sender: FDA-Public Use
  Company Number: None

PATIENT
  Age: 72 Year
  Sex: Female

DRUGS (20)
  1. LOVASTATIN. [Concomitant]
     Active Substance: LOVASTATIN
  2. POT CL MICRO [Concomitant]
  3. ROPINIROLE. [Concomitant]
     Active Substance: ROPINIROLE
  4. AMOX/K CLAV [Concomitant]
     Active Substance: AMOXICILLIN\CLAVULANATE POTASSIUM
  5. CITALOPRAM [Concomitant]
     Active Substance: CITALOPRAM HYDROBROMIDE
  6. DOXYCYCL HYC [Concomitant]
  7. METOPROL SUC [Concomitant]
  8. CARBAMAZEPIN [Concomitant]
     Active Substance: CARBAMAZEPINE
  9. CEPHALEXIN. [Concomitant]
     Active Substance: CEPHALEXIN
  10. CHOLESTYRAM [Concomitant]
     Active Substance: CHOLESTYRAMINE
  11. OXYBUTYNIN. [Concomitant]
     Active Substance: OXYBUTYNIN CHLORIDE
  12. DALFAMPRIDINE 10MG ER TAB [Suspect]
     Active Substance: DALFAMPRIDINE
     Indication: MULTIPLE SCLEROSIS
     Dosage: ?          OTHER DOSE:1 TAB;?
     Route: 048
     Dates: start: 20160123
  13. CAPECITABINE. [Concomitant]
     Active Substance: CAPECITABINE
  14. BUPROPN HCL [Concomitant]
     Active Substance: BUPROPION HYDROCHLORIDE
  15. COPAXONE [Concomitant]
     Active Substance: GLATIRAMER ACETATE
  16. FEROSUL [Concomitant]
     Active Substance: FERROUS SULFATE
  17. BACLOFEN. [Concomitant]
     Active Substance: BACLOFEN
  18. GABAPENTIN. [Concomitant]
     Active Substance: GABAPENTIN
  19. ALLOPURINOL. [Concomitant]
     Active Substance: ALLOPURINOL
  20. VANCOMYCIN [Concomitant]
     Active Substance: VANCOMYCIN

REACTIONS (3)
  - Therapy cessation [None]
  - Clostridium difficile infection [None]
  - Cellulitis [None]

NARRATIVE: CASE EVENT DATE: 20200229
